FAERS Safety Report 7595730-7 (Version None)
Quarter: 2011Q3

REPORT INFORMATION
  Report Type: 
  Country: None (occurrence: None)
  Receive Date: 20110707
  Receipt Date: 20110624
  Transmission Date: 20111222
  Serious: Yes (Hospitalization, Other)
  Sender: FDA-Public Use
  Company Number: US-ELI_LILLY_AND_COMPANY-US201012006360

PATIENT
  Sex: Female

DRUGS (26)
  1. FORTEO [Suspect]
     Indication: OSTEOPOROSIS
     Dosage: 20 UG, QD
     Dates: start: 20100614
  2. KLONOPIN [Concomitant]
  3. ADVAIR DISKUS 100/50 [Concomitant]
  4. NASONEX [Concomitant]
  5. COZAAR [Concomitant]
  6. CELEBREX [Concomitant]
  7. NEXIUM [Concomitant]
  8. ASPIRIN [Concomitant]
  9. IMITREX [Concomitant]
  10. SYNTHROID [Concomitant]
  11. MELATONIN [Concomitant]
  12. XOPENEX [Concomitant]
  13. FORTEO [Suspect]
     Dosage: 20 UG, QD
  14. CELEXA [Concomitant]
  15. VITRON C [Concomitant]
  16. LOVENOX [Concomitant]
  17. ZANAFLEX [Concomitant]
  18. FORTEO [Suspect]
     Dosage: 20 UG, QD
  19. SPIRONOLACTONE W/ HYDROCHLOROTHIAZIDE [Concomitant]
  20. LOTEMAX [Concomitant]
  21. DICYCLOMINE [Concomitant]
  22. VICODIN [Concomitant]
  23. FORTEO [Suspect]
     Dosage: 20 UG, QD
  24. ZOCOR [Concomitant]
  25. CETIRIZINE HCL [Concomitant]
  26. POLYGAM S/D [Concomitant]

REACTIONS (8)
  - BONE OPERATION [None]
  - BURSITIS [None]
  - BACK DISORDER [None]
  - BACK PAIN [None]
  - KNEE ARTHROPLASTY [None]
  - NASOPHARYNGITIS [None]
  - INJECTION SITE HAEMATOMA [None]
  - GAIT DISTURBANCE [None]
